FAERS Safety Report 17692049 (Version 1)
Quarter: 2020Q2

REPORT INFORMATION
  Report Type: Spontaneous
  Country: US (occurrence: US)
  Receive Date: 20200420
  Receipt Date: 20200420
  Transmission Date: 20200714
  Serious: Yes (Death, Hospitalization)
  Sender: FDA-Public Use
  Company Number: None

PATIENT
  Age: 72 Year
  Sex: Female
  Weight: 63 kg

DRUGS (1)
  1. DURVALUMAB (DURVALUMAB 50MG/ML INJ, SOLN, 10ML) [Suspect]
     Active Substance: DURVALUMAB
     Indication: LUNG NEOPLASM MALIGNANT
     Dates: start: 20180616, end: 20181030

REACTIONS (14)
  - Malignant neoplasm progression [None]
  - Dyspnoea [None]
  - Lung infiltration [None]
  - Interstitial lung disease [None]
  - Acute respiratory distress syndrome [None]
  - Immune-mediated pneumonitis [None]
  - Non-small cell lung cancer [None]
  - Therapy interrupted [None]
  - Tongue cancer recurrent [None]
  - Aspiration [None]
  - Glossectomy [None]
  - Fatigue [None]
  - Pneumonitis [None]
  - Pleural effusion [None]

NARRATIVE: CASE EVENT DATE: 20181127
